FAERS Safety Report 26125266 (Version 1)
Quarter: 2025Q4

REPORT INFORMATION
  Report Type: Spontaneous
  Country: CN (occurrence: CN)
  Receive Date: 20251205
  Receipt Date: 20251205
  Transmission Date: 20260117
  Serious: Yes (Hospitalization)
  Sender: ALEXION PHARMACEUTICALS
  Company Number: CN-ASTRAZENECA-202512CHN000850CN

PATIENT
  Age: 72 Year
  Sex: Female
  Weight: 55 kg

DRUGS (2)
  1. TAGRISSO [Suspect]
     Active Substance: OSIMERTINIB
     Indication: Metastases to pleura
     Dosage: 80 MILLIGRAM, QD
     Dates: start: 20240815, end: 20250426
  2. TAGRISSO [Suspect]
     Active Substance: OSIMERTINIB
     Indication: Lung neoplasm malignant

REACTIONS (3)
  - Extrasystoles [Recovered/Resolved]
  - Chest pain [Recovered/Resolved]
  - Ejection fraction abnormal [Recovering/Resolving]

NARRATIVE: CASE EVENT DATE: 20250417
